FAERS Safety Report 17425130 (Version 2)
Quarter: 2020Q3

REPORT INFORMATION
  Report Type: Other
  Country: US (occurrence: US)
  Receive Date: 20200217
  Receipt Date: 20200824
  Transmission Date: 20201102
  Serious: Yes (Other)
  Sender: FDA-Public Use
  Company Number: US-ROCHE-2545135

PATIENT
  Age: 70 Year
  Sex: Female
  Weight: 99.88 kg

DRUGS (10)
  1. GILENYA [Concomitant]
     Active Substance: FINGOLIMOD HYDROCHLORIDE
  2. BUSPIRONE [Concomitant]
     Active Substance: BUSPIRONE HYDROCHLORIDE
  3. CYMBALTA [Concomitant]
     Active Substance: DULOXETINE HYDROCHLORIDE
  4. VALIUM [Suspect]
     Active Substance: DIAZEPAM
     Indication: MUSCLE SPASMS
     Dosage: ONGOING YES
     Route: 048
     Dates: start: 2019
  5. PILOCARPINE. [Concomitant]
     Active Substance: PILOCARPINE
  6. HYDROXYCHLOROQUINE [Concomitant]
     Active Substance: HYDROXYCHLOROQUINE
  7. MOBIC [Concomitant]
     Active Substance: MELOXICAM
  8. GAMMAGLOBULIN [Concomitant]
     Active Substance: HUMAN IMMUNOGLOBULIN G
  9. POTASSIUM [Concomitant]
     Active Substance: POTASSIUM
  10. OCREVUS [Suspect]
     Active Substance: OCRELIZUMAB
     Indication: RELAPSING-REMITTING MULTIPLE SCLEROSIS
     Dosage: ONGOING: YES
     Route: 042
     Dates: start: 2017

REACTIONS (11)
  - Fall [Unknown]
  - Back disorder [Unknown]
  - Arthritis [Not Recovered/Not Resolved]
  - Back pain [Unknown]
  - Sinusitis [Unknown]
  - Muscle spasms [Not Recovered/Not Resolved]
  - Multiple sclerosis relapse [Unknown]
  - Anxiety [Not Recovered/Not Resolved]
  - Multiple sclerosis relapse [Not Recovered/Not Resolved]
  - Rotator cuff syndrome [Unknown]
  - Sinusitis [Not Recovered/Not Resolved]

NARRATIVE: CASE EVENT DATE: 2018
